FAERS Safety Report 4363264-9 (Version None)
Quarter: 2004Q2

REPORT INFORMATION
  Report Type: 
  Country: None (occurrence: None)
  Receive Date: 20040518
  Receipt Date: 20040505
  Transmission Date: 20050107
  Serious: Yes (Hospitalization)
  Sender: FDA-Public Use
  Company Number: 204993

PATIENT
  Age: 47 Year
  Sex: Male
  Weight: 71.7 kg

DRUGS (11)
  1. MABTHERA (RITUXIMAB) CONC FOR SOLUTION FOR INFUSION [Suspect]
     Indication: NON-HODGKIN'S LYMPHOMA
     Dosage: 375 MG/M2, Q3W, INTRAVENOUS
     Route: 042
     Dates: start: 20031023
  2. CYCLOPHOSPHAMIDE [Suspect]
     Indication: NON-HODGKIN'S LYMPHOMA
     Dosage: 750 MG/M2, Q3W, INTRAVENOUS
     Route: 042
     Dates: start: 20031023
  3. DOXORUBICIN HCL [Suspect]
     Indication: NON-HODGKIN'S LYMPHOMA
     Dosage: 50 MG/M2, Q3W, INTRAVENOUS
     Route: 042
     Dates: start: 20031023
  4. ETOPOSIDE [Suspect]
     Indication: NON-HODGKIN'S LYMPHOMA
     Dosage: 100 MG/M2, Q3W, INTRAVENOUS
     Route: 042
     Dates: start: 20031023
  5. VINCRISTINE [Suspect]
     Indication: NON-HODGKIN'S LYMPHOMA
     Dosage: 2 MG, Q3W, INTRAVENOUS
     Route: 042
     Dates: start: 20031023
  6. PREDNISONE [Suspect]
     Indication: NON-HODGKIN'S LYMPHOMA
     Dosage: 100 MG, Q3W, ORAL
     Route: 048
     Dates: start: 20031023
  7. BISOPROLOL FUMARATE [Concomitant]
  8. PANTOPRAZOLE (PANTOPRAZOLE) [Concomitant]
  9. HYDROCHLOROTHIAZIDE [Concomitant]
  10. CIPROFLOXAIN (CIPROFLOXACIN) [Concomitant]
  11. ALLOPURINOL [Concomitant]

REACTIONS (4)
  - ABDOMINAL PAIN [None]
  - DIARRHOEA [None]
  - FEBRILE NEUTROPENIA [None]
  - GENERAL PHYSICAL HEALTH DETERIORATION [None]
